FAERS Safety Report 16410729 (Version 1)
Quarter: 2019Q2

REPORT INFORMATION
  Report Type: Spontaneous
  Country: CN (occurrence: CN)
  Receive Date: 20190610
  Receipt Date: 20190610
  Transmission Date: 20190711
  Serious: Yes (Hospitalization, Other)
  Sender: FDA-Public Use
  Company Number: CN-PFIZER INC-2019236823

PATIENT
  Age: 68 Year
  Sex: Female
  Weight: 46 kg

DRUGS (2)
  1. VENLAFAXINE HCL [Suspect]
     Active Substance: VENLAFAXINE HYDROCHLORIDE
     Indication: SLEEP DISORDER
     Dosage: 225 MG, 1X/DAY
     Route: 048
     Dates: start: 20190401, end: 20190522
  2. QI BI TE [Suspect]
     Active Substance: BUSPIRONE HYDROCHLORIDE
     Indication: SLEEP DISORDER
     Dosage: 10 MG, 1X/DAY
     Route: 048
     Dates: start: 20190401, end: 20190522

REACTIONS (6)
  - Hepatic function abnormal [Recovering/Resolving]
  - Hepatitis acute [Unknown]
  - Diabetes mellitus [Unknown]
  - Product use in unapproved indication [Recovered/Resolved]
  - Hypokalaemia [Unknown]
  - Off label use [Recovered/Resolved]

NARRATIVE: CASE EVENT DATE: 20190401
